FAERS Safety Report 4841772-1 (Version None)
Quarter: 2005Q4

REPORT INFORMATION
  Report Type: 
  Country: None (occurrence: None)
  Receive Date: 20051130
  Receipt Date: 20051121
  Transmission Date: 20060501
  Serious: Yes (Other)
  Sender: FDA-Public Use
  Company Number: US-ROCHE-425888

PATIENT
  Age: 54 Year
  Sex: Female

DRUGS (2)
  1. PEGASYS [Suspect]
     Indication: DRUG USE FOR UNKNOWN INDICATION
     Dosage: ROUTE REPORTD AS INJECTABLE.
     Route: 050
     Dates: start: 20050424, end: 20051002
  2. COPEGUS [Suspect]
     Indication: DRUG USE FOR UNKNOWN INDICATION
     Route: 048
     Dates: start: 20050424, end: 20051002

REACTIONS (6)
  - ABDOMINAL PAIN LOWER [None]
  - DECREASED APPETITE [None]
  - EYE DISORDER [None]
  - FATIGUE [None]
  - INSOMNIA [None]
  - OVARIAN DISORDER [None]
